FAERS Safety Report 19794587 (Version 1)
Quarter: 2021Q3

REPORT INFORMATION
  Report Type: Spontaneous
  Country: GB (occurrence: GB)
  Receive Date: 20210906
  Receipt Date: 20210906
  Transmission Date: 20211014
  Serious: Yes (Hospitalization, Other)
  Sender: FDA-Public Use
  Company Number: GB-TEVA-2021-GB-1948554

PATIENT
  Age: 46 Year
  Sex: Female

DRUGS (3)
  1. RIVAROXABAN [Suspect]
     Active Substance: RIVAROXABAN
     Indication: CEREBRAL VENOUS SINUS THROMBOSIS
     Dosage: 20 MILLIGRAM DAILY;
     Route: 065
  2. WARFARIN [Suspect]
     Active Substance: WARFARIN
     Dosage: UNK, REINITIATING WARFARIN AT HIGH INTENSITY
     Route: 065
  3. WARFARIN [Suspect]
     Active Substance: WARFARIN
     Indication: CEREBRAL VENOUS SINUS THROMBOSIS
     Dosage: UNK (SUBTHERAPEUTIC)
     Route: 065

REACTIONS (4)
  - Back pain [Unknown]
  - Adrenal haemorrhage [Unknown]
  - Cerebral venous sinus thrombosis [Unknown]
  - Splenic vein thrombosis [Unknown]
